FAERS Safety Report 25687491 (Version 1)
Quarter: 2025Q3

REPORT INFORMATION
  Report Type: Spontaneous
  Country: US (occurrence: US)
  Receive Date: 20250817
  Receipt Date: 20250817
  Transmission Date: 20251021
  Serious: Yes (Death, Other)
  Sender: AUROBINDO
  Company Number: US-APOTEX-2015AP010155

PATIENT
  Age: 28 Year
  Sex: Female

DRUGS (2)
  1. FLECAINIDE [Suspect]
     Active Substance: FLECAINIDE
     Indication: Atrial tachycardia
     Route: 048
  2. FLECAINIDE [Suspect]
     Active Substance: FLECAINIDE
     Route: 048

REACTIONS (8)
  - Multiple organ dysfunction syndrome [Fatal]
  - Pulseless electrical activity [Fatal]
  - Toxicity to various agents [Fatal]
  - Intentional overdose [Fatal]
  - Hypotension [Fatal]
  - Confusional state [Unknown]
  - Dizziness [Unknown]
  - Nausea [Unknown]
